FAERS Safety Report 8265035-X (Version None)
Quarter: 2012Q2

REPORT INFORMATION
  Report Type: 
  Country: None (occurrence: None)
  Receive Date: 20120406
  Receipt Date: 20120404
  Transmission Date: 20120825
  Serious: Yes (Death)
  Sender: FDA-Public Use
  Company Number: PHHY2011BE102607

PATIENT
  Sex: Female

DRUGS (4)
  1. ANTIDEPRESSANTS [Suspect]
  2. HUMIRA [Concomitant]
     Indication: CROHN'S DISEASE
  3. IMODIUM [Concomitant]
     Indication: DIARRHOEA
  4. SANDOSTATIN LAR [Suspect]
     Indication: CROHN'S DISEASE
     Dosage: UNK UKN, UNK
     Route: 030
     Dates: start: 20100601

REACTIONS (1)
  - COMPLETED SUICIDE [None]
